FAERS Safety Report 26180468 (Version 1)
Quarter: 2025Q4

REPORT INFORMATION
  Report Type: Report from Study
  Country: CO (occurrence: CO)
  Receive Date: 20251219
  Receipt Date: 20251219
  Transmission Date: 20260118
  Serious: Yes (Death, Hospitalization)
  Sender: ABBVIE
  Company Number: CO-ABBVIE-6597890

PATIENT
  Age: 62 Year
  Sex: Female

DRUGS (1)
  1. RINVOQ [Suspect]
     Active Substance: UPADACITINIB
     Indication: Colitis ulcerative
     Dosage: BOTTLE 15 MG
     Route: 048
     Dates: start: 20251030, end: 20251130

REACTIONS (2)
  - Colon cancer metastatic [Fatal]
  - Respiratory failure [Fatal]

NARRATIVE: CASE EVENT DATE: 20251201
